FAERS Safety Report 7118227 (Version 3)
Quarter: 2013Q3

REPORT INFORMATION
  Report Type: Spontaneous
  Country: US (occurrence: None)
  Receive Date: 20090908
  Receipt Date: 20130709
  Transmission Date: 20140515
  Serious: Yes (Death, Hospitalization)
  Sender: FDA-Public Use
  Company Number: AUR-APU-2009-00566

PATIENT
  Age: 26 Day
  Sex: Female

DRUGS (6)
  1. ZIDOVUDINE (ZIDOVUDINE) [Suspect]
     Indication: HUMAN IMMUNODEFICIENCY VIRUS TRANSMISSION
     Dosage: 4MG/KG - Q12HOURS -
     Route: 064
  2. ZIDOVUDINE (ZIDOVUDINE) [Suspect]
     Indication: PROPHYLAXIS
     Dosage: 4MG/KG - Q12HOURS -
     Route: 064
  3. NEVIRAPINE (NEVIRAPINE) [Suspect]
     Indication: HUMAN IMMUNODEFICIENCY VIRUS TRANSMISSION
     Dosage: 2MG/KG - X1 -  200MG - X1 - TRANPLACENTALLY
  4. NEVIRAPINE (NEVIRAPINE) [Suspect]
     Indication: PROPHYLAXIS
     Dosage: 2MG/KG - X1 -  200MG - X1 - TRANPLACENTALLY
  5. EMTRICITABINE+TENOFOVIR [Suspect]
     Indication: HUMAN IMMUNODEFICIENCY VIRUS TRANSMISSION
  6. EMTRICITABINE+TENOFOVIR [Suspect]
     Indication: PROPHYLAXIS

REACTIONS (5)
  - Gastroenteritis [None]
  - Intestinal obstruction [None]
  - Anaemia neonatal [None]
  - Death neonatal [None]
  - Maternal drugs affecting foetus [None]
